FAERS Safety Report 19368024 (Version 5)
Quarter: 2021Q4

REPORT INFORMATION
  Report Type: Report from Study
  Country: DE (occurrence: DE)
  Receive Date: 20210602
  Receipt Date: 20211119
  Transmission Date: 20220303
  Serious: Yes (Other)
  Sender: FDA-Public Use
  Company Number: DE-SHIRE-DE202014267

PATIENT
  Age: 40 Year
  Sex: Female

DRUGS (1)
  1. SOLGEST [Concomitant]
     Indication: Iron deficiency anaemia
     Dosage: 75 MICROGRAM
     Route: 048
     Dates: start: 20200305

REACTIONS (21)
  - Heavy menstrual bleeding [Recovered/Resolved]
  - Superficial vein thrombosis [Recovered/Resolved]
  - Haematoma [Unknown]
  - Upper limb fracture [Recovering/Resolving]
  - Lethargy [Recovering/Resolving]
  - Fatigue [Recovered/Resolved]
  - Listless [Recovered/Resolved]
  - Arthralgia [Recovering/Resolving]
  - Malaise [Recovered/Resolved]
  - Pallor [Unknown]
  - Pain in extremity [Recovered/Resolved]
  - Peripheral swelling [Recovered/Resolved]
  - Erythema [Recovered/Resolved]
  - Fall [Recovering/Resolving]
  - Cast application [Recovering/Resolving]
  - Limb immobilisation [Recovering/Resolving]
  - Dizziness [Recovered/Resolved]
  - Joint swelling [Recovered/Resolved]
  - Ligament sprain [Unknown]
  - Tenderness [Recovered/Resolved]
  - Movement disorder [Recovered/Resolved]

NARRATIVE: CASE EVENT DATE: 20200420
